FAERS Safety Report 11146140 (Version 1)
Quarter: 2015Q2

REPORT INFORMATION
  Report Type: Spontaneous
  Country: US (occurrence: US)
  Receive Date: 20150528
  Receipt Date: 20150528
  Transmission Date: 20150821
  Serious: Yes (Disabling, Other)
  Sender: FDA-Public Use
  Company Number: US-WATSON-2015-10311

PATIENT
  Age: 44 Year
  Sex: Male

DRUGS (4)
  1. REMERON [Concomitant]
     Active Substance: MIRTAZAPINE
     Indication: DEPRESSION
     Dosage: UNK, UNKNOWN
     Route: 065
  2. REMERON [Concomitant]
     Active Substance: MIRTAZAPINE
     Indication: SLEEP DISORDER
  3. CONDYLOX [Suspect]
     Active Substance: PODOFILOX
     Indication: ANOGENITAL WARTS
     Dosage: UNK, UNKNOWN
     Route: 061
     Dates: start: 2011
  4. CONDYLOX [Suspect]
     Active Substance: PODOFILOX
     Indication: SEXUALLY TRANSMITTED DISEASE

REACTIONS (6)
  - Eye injury [Not Recovered/Not Resolved]
  - Eye disorder [Unknown]
  - Accidental exposure to product [Unknown]
  - Ocular hyperaemia [Recovering/Resolving]
  - Vision blurred [Recovering/Resolving]
  - Eye irritation [Recovering/Resolving]

NARRATIVE: CASE EVENT DATE: 2012
